FAERS Safety Report 17202240 (Version 1)
Quarter: 2019Q4

REPORT INFORMATION
  Report Type: Spontaneous
  Country: US (occurrence: US)
  Receive Date: 20191226
  Receipt Date: 20191226
  Transmission Date: 20200122
  Serious: Yes (Hospitalization)
  Sender: FDA-Public Use
  Company Number: US-NOVOPROD-703407

PATIENT
  Age: 53 Year
  Sex: Male
  Weight: 114.31 kg

DRUGS (1)
  1. TRESIBA [Suspect]
     Active Substance: INSULIN DEGLUDEC
     Indication: TYPE 2 DIABETES MELLITUS
     Dosage: 24 IU, QD ( IN THE EVENING)
     Route: 058
     Dates: end: 2019

REACTIONS (1)
  - Pancreatitis [Recovered/Resolved]
